FAERS Safety Report 5005537-2 (Version None)
Quarter: 2006Q2

REPORT INFORMATION
  Report Type: 
  Country: None (occurrence: None)
  Receive Date: 20060518
  Receipt Date: 20060510
  Transmission Date: 20061013
  Serious: Yes (Other)
  Sender: FDA-Public Use
  Company Number: US-ROCHE-447728

PATIENT
  Sex: Female

DRUGS (1)
  1. ACCUTANE [Suspect]
     Indication: DRUG USE FOR UNKNOWN INDICATION
     Route: 065
     Dates: start: 19991115, end: 20000315

REACTIONS (5)
  - BENIGN INTRACRANIAL HYPERTENSION [None]
  - BLOOD TEST ABNORMAL [None]
  - DEPRESSION [None]
  - SUICIDAL IDEATION [None]
  - THERAPY NON-RESPONDER [None]
